FAERS Safety Report 18955358 (Version 2)
Quarter: 2021Q1

REPORT INFORMATION
  Report Type: Spontaneous
  Country: US (occurrence: US)
  Receive Date: 20210301
  Receipt Date: 20210329
  Transmission Date: 20210420
  Serious: Yes (Hospitalization, Other)
  Sender: FDA-Public Use
  Company Number: US-SA-2021SA061458

PATIENT
  Age: 70 Year
  Sex: Male
  Weight: 154.22 kg

DRUGS (4)
  1. LANTUS [Suspect]
     Active Substance: INSULIN GLARGINE
     Indication: TYPE 2 DIABETES MELLITUS
     Dosage: 25 IU
     Route: 065
     Dates: start: 2020
  2. PREDNISONE. [Concomitant]
     Active Substance: PREDNISONE
     Dosage: 60 MG
     Route: 065
  3. LANTUS [Suspect]
     Active Substance: INSULIN GLARGINE
     Dosage: 60 IU, Q12H
     Route: 065
  4. HUMALOG [Concomitant]
     Active Substance: INSULIN LISPRO
     Dosage: UNK UNK, TID
     Route: 065

REACTIONS (4)
  - Pulmonary haemorrhage [Unknown]
  - Intentional product misuse [Unknown]
  - Cardiac operation [Unknown]
  - Anti-neutrophil cytoplasmic antibody positive vasculitis [Unknown]

NARRATIVE: CASE EVENT DATE: 202101
